FAERS Safety Report 9276208 (Version 2)
Quarter: 2013Q2

REPORT INFORMATION
  Report Type: Spontaneous
  Country: US (occurrence: None)
  Receive Date: 20130501
  Receipt Date: 20130531
  Transmission Date: 20140414
  Serious: Yes (Hospitalization)
  Sender: FDA-Public Use
  Company Number: JPI-P-030576

PATIENT
  Age: 33 Year
  Sex: Female
  Weight: 77.11 kg

DRUGS (7)
  1. XYREM [Suspect]
     Indication: NARCOLEPSY
     Dosage: 4.5 GM (2.25 GM, 2 IN 1 D), ORAL
     Route: 048
     Dates: start: 20120611
  2. XYREM [Suspect]
     Indication: SOMNOLENCE
     Dosage: 4.5 GM (2.25 GM, 2 IN 1 D), ORAL
     Route: 048
     Dates: start: 20120611
  3. SERTRALINE HYDROCHLORIDE [Concomitant]
  4. BUSPIRONE [Concomitant]
  5. HYDROXYZINE [Concomitant]
  6. CLONAZEPAM [Concomitant]
  7. RISPERIDONE [Concomitant]

REACTIONS (8)
  - Abnormal dreams [None]
  - Middle insomnia [None]
  - Anxiety [None]
  - Vomiting [None]
  - Fatigue [None]
  - Crying [None]
  - Psychotic disorder [None]
  - Panic attack [None]
